FAERS Safety Report 8932923 (Version 1)
Quarter: 2012Q4

REPORT INFORMATION
  Report Type: Report from Study
  Country: CA (occurrence: CA)
  Receive Date: 20121129
  Receipt Date: 20121129
  Transmission Date: 20130627
  Serious: Yes (Other)
  Sender: FDA-Public Use
  Company Number: CA-JNJFOC-20121109800

PATIENT
  Age: 37 None
  Sex: Female

DRUGS (3)
  1. SIMPONI [Suspect]
     Indication: PSORIATIC ARTHROPATHY
     Route: 058
     Dates: start: 20120418, end: 20120924
  2. MTX [Concomitant]
     Route: 058
  3. NAPROXEN [Concomitant]
     Route: 048

REACTIONS (2)
  - Uterine polyp [Unknown]
  - Heart rate increased [Unknown]
